FAERS Safety Report 8200962-0 (Version None)
Quarter: 2012Q1

REPORT INFORMATION
  Report Type: 
  Country: None (occurrence: None)
  Receive Date: 20120305
  Receipt Date: 20120220
  Transmission Date: 20120608
  Serious: Yes (Other)
  Sender: FDA-Public Use
  Company Number: 2012031415

PATIENT
  Age: 60 Year
  Sex: Male

DRUGS (31)
  1. PRIVIGEN [Suspect]
  2. PRIVIGEN [Suspect]
  3. MYTELASE [Concomitant]
  4. PRIVIGEN [Suspect]
  5. PRIVIGEN [Suspect]
  6. PRIVIGEN [Suspect]
  7. IRBESARTAN [Concomitant]
  8. PRIVIGEN [Suspect]
  9. LEVOTHYROXINE SODIUM [Concomitant]
  10. FUROSEMIDE [Concomitant]
  11. XATRAL (ALFUZOSIN) [Concomitant]
  12. PRIVIGEN [Suspect]
  13. PRIVIGEN [Suspect]
  14. ASPIRIN [Concomitant]
  15. PRIVIGEN [Suspect]
     Indication: MUSCULAR WEAKNESS
     Dosage: SEE IMAGE
     Route: 042
     Dates: start: 20110201
  16. PRIVIGEN [Suspect]
     Indication: MUSCULAR WEAKNESS
     Dosage: SEE IMAGE
     Route: 042
     Dates: start: 20110401
  17. PRIVIGEN [Suspect]
     Indication: MUSCULAR WEAKNESS
     Dosage: SEE IMAGE
     Route: 042
     Dates: start: 20110501
  18. PRIVIGEN [Suspect]
     Indication: MUSCULAR WEAKNESS
     Dosage: SEE IMAGE
     Route: 042
     Dates: start: 20111010, end: 20111013
  19. PRIVIGEN [Suspect]
     Indication: MUSCULAR WEAKNESS
     Dosage: SEE IMAGE
     Route: 042
     Dates: start: 20101201
  20. PRIVIGEN [Suspect]
     Indication: MUSCULAR WEAKNESS
     Dosage: SEE IMAGE
     Route: 042
     Dates: start: 20110801
  21. PRIVIGEN [Suspect]
     Indication: MUSCULAR WEAKNESS
     Dosage: SEE IMAGE
     Route: 042
     Dates: start: 20111001
  22. PRIVIGEN [Suspect]
     Indication: MUSCULAR WEAKNESS
     Dosage: SEE IMAGE
     Route: 042
     Dates: start: 20110101
  23. PRIVIGEN [Suspect]
  24. PRIVIGEN [Suspect]
  25. PRIVIGEN [Suspect]
  26. PRIVIGEN [Suspect]
  27. OMEPRAZOLE [Concomitant]
  28. PRIVIGEN [Suspect]
     Route: 067
  29. ATORVASTATIN CALCIUM [Concomitant]
  30. METFORMIN HCL [Concomitant]
  31. BISOPROLOL FUMARATE [Concomitant]

REACTIONS (6)
  - GAMMA-GLUTAMYLTRANSFERASE INCREASED [None]
  - TRANSMISSION OF AN INFECTIOUS AGENT VIA A MEDICINAL PRODUCT [None]
  - HEPATITIS B SURFACE ANTIBODY POSITIVE [None]
  - HEPATITIS B CORE ANTIBODY POSITIVE [None]
  - BLOOD ALKALINE PHOSPHATASE INCREASED [None]
  - HEPATOMEGALY [None]
